FAERS Safety Report 8581114-1 (Version None)
Quarter: 2012Q3

REPORT INFORMATION
  Report Type: 
  Country: None (occurrence: None)
  Receive Date: 20120809
  Receipt Date: 20120806
  Transmission Date: 20120928
  Serious: Yes (Other)
  Sender: FDA-Public Use
  Company Number: US-AMGEN-USASP2011013754

PATIENT
  Age: 75 Year
  Sex: Male

DRUGS (2)
  1. ENBREL [Suspect]
     Indication: RHEUMATOID ARTHRITIS
     Dosage: 25 MG, 2 TIMES/WK
     Route: 058
     Dates: start: 20060306
  2. LISINOPRIL AND HYDROCHLOROTHIAZIDE [Concomitant]
     Indication: BLOOD PRESSURE INCREASED
     Dosage: 20 MG, UNK
     Route: 048
     Dates: start: 20090801

REACTIONS (5)
  - PARAESTHESIA [None]
  - ARTHRITIS [None]
  - JOINT STIFFNESS [None]
  - MOBILITY DECREASED [None]
  - HYPOAESTHESIA [None]
